FAERS Safety Report 21633233 (Version 1)
Quarter: 2022Q4

REPORT INFORMATION
  Report Type: Report from Study
  Country: US (occurrence: US)
  Receive Date: 20221123
  Receipt Date: 20221123
  Transmission Date: 20230112
  Serious: No
  Sender: FDA-Public Use
  Company Number: US-ABBVIE-22K-163-4468534-00

PATIENT
  Sex: Female

DRUGS (3)
  1. IMBRUVICA [Suspect]
     Active Substance: IBRUTINIB
     Indication: Mantle cell lymphoma
     Dosage: THERAPY DISCONTINUED IN 2022
     Route: 048
     Dates: start: 20220603
  2. IMBRUVICA [Suspect]
     Active Substance: IBRUTINIB
     Indication: Mantle cell lymphoma
     Route: 048
     Dates: start: 2022
  3. MODERNA COVID-19 VACCINE [Concomitant]
     Active Substance: ELASOMERAN
     Indication: COVID-19 immunisation
     Dosage: TIME INTERVAL: 1 TOTAL: ONE IN ONCE
     Route: 030

REACTIONS (7)
  - Dry mouth [Recovering/Resolving]
  - Throat tightness [Unknown]
  - Dry throat [Unknown]
  - Mouth haemorrhage [Unknown]
  - Palpitations [Unknown]
  - Blepharospasm [Unknown]
  - Facial spasm [Unknown]

NARRATIVE: CASE EVENT DATE: 20220101
